FAERS Safety Report 7906651-1 (Version None)
Quarter: 2011Q4

REPORT INFORMATION
  Report Type: 
  Country: None (occurrence: None)
  Receive Date: 20111109
  Receipt Date: 20111109
  Transmission Date: 20120403
  Serious: No
  Sender: FDA-Public Use
  Company Number: None

PATIENT
  Sex: Male
  Weight: 95.2554 kg

DRUGS (1)
  1. ADVAIR DISKUS 500/50 [Suspect]
     Indication: PULMONARY FUNCTION TEST DECREASED
     Dosage: 1 PUFF 2 TIMES DAILY
     Dates: start: 20070101, end: 20110101

REACTIONS (4)
  - SPEECH DISORDER [None]
  - APHONIA [None]
  - OROPHARYNGEAL PAIN [None]
  - DYSPHONIA [None]
